FAERS Safety Report 8602118-6 (Version None)
Quarter: 2012Q3

REPORT INFORMATION
  Report Type: 
  Country: None (occurrence: None)
  Receive Date: 20120817
  Receipt Date: 20120814
  Transmission Date: 20120928
  Serious: Yes (Hospitalization)
  Sender: FDA-Public Use
  Company Number: US-PFIZER INC-2012198752

PATIENT
  Age: 69 Year
  Sex: Female
  Weight: 61.224 kg

DRUGS (1)
  1. CARDURA [Suspect]
     Indication: HYPERTENSION
     Dosage: 4 MG, DAILY

REACTIONS (1)
  - CORONARY ARTERY OCCLUSION [None]
